FAERS Safety Report 4378243-5 (Version None)
Quarter: 2004Q2

REPORT INFORMATION
  Report Type: 
  Country: None (occurrence: None)
  Receive Date: 20040614
  Receipt Date: 20040521
  Transmission Date: 20050107
  Serious: Yes (Hospitalization)
  Sender: FDA-Public Use
  Company Number: US_0405103254

PATIENT
  Age: 53 Year
  Sex: Female
  Weight: 80 kg

DRUGS (6)
  1. HUMATROPE [Suspect]
     Dosage: 6 UG/1 DAY
     Dates: start: 19980517, end: 20030701
  2. SYNTHROID [Concomitant]
  3. MAXZIDE [Concomitant]
  4. REGLAN [Concomitant]
  5. ZOCOR [Concomitant]
  6. ZOLOFT [Concomitant]

REACTIONS (1)
  - TRANSIENT ISCHAEMIC ATTACK [None]
